FAERS Safety Report 6851622-X (Version None)
Quarter: 2010Q3

REPORT INFORMATION
  Report Type: 
  Country: None (occurrence: None)
  Receive Date: 20100717
  Receipt Date: 20080122
  Transmission Date: 20110219
  Serious: No
  Sender: FDA-Public Use
  Company Number: US-PFIZER INC-2008006978

PATIENT
  Sex: Male
  Weight: 77.1 kg

DRUGS (6)
  1. CHANTIX [Suspect]
     Indication: SMOKING CESSATION THERAPY
     Dates: start: 20071001
  2. HYDROCHLOROTHIAZIDE [Concomitant]
  3. COLCHICINE [Concomitant]
  4. CELEBREX [Concomitant]
  5. METOPROLOL [Concomitant]
  6. PROTONIX [Concomitant]

REACTIONS (1)
  - VISUAL IMPAIRMENT [None]
